FAERS Safety Report 6145412-3 (Version None)
Quarter: 2009Q2

REPORT INFORMATION
  Report Type: 
  Country: None (occurrence: None)
  Receive Date: 20090402
  Receipt Date: 20090317
  Transmission Date: 20091009
  Serious: Yes (Hospitalization)
  Sender: FDA-Public Use
  Company Number: 2009S1002575

PATIENT
  Sex: Female

DRUGS (1)
  1. PHOSPHOSODA PLAVOR NOT SPECIFIED [Suspect]
     Indication: COLONOSCOPY
     Dosage: 90 ML; TOTAL;PO
     Route: 048
     Dates: start: 20080609, end: 20080609

REACTIONS (5)
  - ANAEMIA [None]
  - DRUG TOXICITY [None]
  - HYPERPHOSPHATAEMIA [None]
  - RENAL FAILURE ACUTE [None]
  - RENAL INJURY [None]
